FAERS Safety Report 4620832-4 (Version None)
Quarter: 2005Q1

REPORT INFORMATION
  Report Type: 
  Country: None (occurrence: None)
  Receive Date: 20050325
  Receipt Date: 20050314
  Transmission Date: 20050727
  Serious: Yes (Death)
  Sender: FDA-Public Use
  Company Number: F03200400092

PATIENT
  Age: 61 Year
  Sex: Male
  Weight: 70.3075 kg

DRUGS (8)
  1. OXALIPLATIN - SOLUTION [Suspect]
     Indication: COLORECTAL CANCER METASTATIC
     Dosage: 146 MG Q2W - INTRAVENOUS NOS
     Route: 042
     Dates: start: 20040817, end: 20040817
  2. CETUXIMAB - SOLUTION [Suspect]
     Indication: COLORECTAL CANCER METASTATIC
     Dosage: 430 MG 1/WEEK - INTRAVENOUS NOS
     Route: 042
     Dates: start: 20040817, end: 20040817
  3. FLUOROURACIL [Suspect]
     Indication: COLORECTAL CANCER METASTATIC
     Dosage: 688 MG IV BOLUS, FOLLOWED BY 4128 MG OVER 46 HOURS Q2W - INTRAVENOUS NOS
     Route: 040
     Dates: start: 20040817, end: 20040819
  4. LEUCOVORIN CALCIUM [Suspect]
     Indication: COLORECTAL CANCER METASTATIC
     Dosage: 688 MG Q2W - INTRAVENOUS NOS
     Route: 042
     Dates: start: 20040817, end: 20040817
  5. METFORMIN HCL [Concomitant]
  6. GLIPIZIDE [Concomitant]
  7. QUINAPRIL HCL [Concomitant]
  8. WARFARIN SODIUM [Concomitant]

REACTIONS (20)
  - AORTIC DISSECTION [None]
  - BACK PAIN [None]
  - BLOOD PRESSURE DECREASED [None]
  - BONE PAIN [None]
  - CATHETER SITE INFECTION [None]
  - CHEST PAIN [None]
  - COLORECTAL CANCER [None]
  - CYANOSIS [None]
  - EXTRADURAL ABSCESS [None]
  - HEART RATE DECREASED [None]
  - HYPOAESTHESIA [None]
  - IMMUNOSUPPRESSION [None]
  - MALIGNANT NEOPLASM PROGRESSION [None]
  - MENTAL STATUS CHANGES [None]
  - MYOCARDIAL INFARCTION [None]
  - OXYGEN SATURATION DECREASED [None]
  - SEDATION [None]
  - SPINAL CORD COMPRESSION [None]
  - TENDERNESS [None]
  - THROMBOSIS [None]
